FAERS Safety Report 8178149-X (Version None)
Quarter: 2012Q1

REPORT INFORMATION
  Report Type: 
  Country: None (occurrence: None)
  Receive Date: 20120301
  Receipt Date: 20120227
  Transmission Date: 20120608
  Serious: Yes (Death, Other)
  Sender: FDA-Public Use
  Company Number: CHPA2012US003650

PATIENT
  Age: 16 Year
  Sex: Male

DRUGS (4)
  1. DEXTROMETHORPHAN HYDROBROMIDE [Suspect]
     Dosage: UNK, UNK
     Route: 065
  2. ETHANOL [Suspect]
     Dosage: UNK, UNK
     Route: 065
  3. FENTANYL [Suspect]
     Dosage: UNK, UNK
     Route: 065
  4. MARIJUANA [Suspect]
     Dosage: UNK, UNK
     Route: 065

REACTIONS (2)
  - CARDIO-RESPIRATORY ARREST [None]
  - DRUG ABUSE [None]
